FAERS Safety Report 5368519-7 (Version None)
Quarter: 2007Q2

REPORT INFORMATION
  Report Type: 
  Country: None (occurrence: None)
  Receive Date: 20070625
  Receipt Date: 20070615
  Transmission Date: 20071010
  Serious: Yes (Hospitalization, Other)
  Sender: FDA-Public Use
  Company Number: DE-GENENTECH-242299

PATIENT
  Sex: Female
  Weight: 81 kg

DRUGS (4)
  1. MABTHERA [Suspect]
     Indication: RHEUMATOID ARTHRITIS
     Dosage: UNK, UNK
     Dates: end: 20061001
  2. CORTISONE ACETATE [Concomitant]
     Indication: DRUG USE FOR UNKNOWN INDICATION
  3. METHOTREXATE [Concomitant]
     Indication: RHEUMATOID ARTHRITIS
     Dosage: 15 MG, 1/WEEK
     Route: 048
  4. DECORTIN H [Concomitant]
     Indication: RHEUMATOID ARTHRITIS
     Dosage: 4 MG, QD
     Route: 048

REACTIONS (4)
  - ALVEOLITIS [None]
  - LEUKOPENIA [None]
  - LYMPHOCYTOSIS [None]
  - PYREXIA [None]
